FAERS Safety Report 6843473-7 (Version None)
Quarter: 2010Q2

REPORT INFORMATION
  Report Type: 
  Country: None (occurrence: None)
  Receive Date: 20100629
  Receipt Date: 20100512
  Transmission Date: 20101027
  Serious: No
  Sender: FDA-Public Use
  Company Number: US-WYE-H15111310

PATIENT
  Sex: Female

DRUGS (2)
  1. PRISTIQ [Suspect]
  2. CELEXA [Suspect]

REACTIONS (5)
  - AGITATION [None]
  - DECREASED APPETITE [None]
  - FEELING ABNORMAL [None]
  - NAUSEA [None]
  - PANIC REACTION [None]
